FAERS Safety Report 13150193 (Version 1)
Quarter: 2017Q1

REPORT INFORMATION
  Report Type: Spontaneous
  Country: US (occurrence: US)
  Receive Date: 20170125
  Receipt Date: 20170125
  Transmission Date: 20170428
  Serious: No
  Sender: FDA-Public Use
  Company Number: US-ASTRAZENECA-2017SE04801

PATIENT
  Age: 803 Month
  Sex: Male
  Weight: 80.3 kg

DRUGS (2)
  1. PULMICORT FLEXHALER [Suspect]
     Active Substance: BUDESONIDE
     Indication: DIAPHRAGMATIC PARALYSIS
     Dosage: 180 UG, 2 PUFFS TWICE A DAY
     Route: 055
     Dates: start: 201612
  2. PULMICORT FLEXHALER [Suspect]
     Active Substance: BUDESONIDE
     Indication: CHRONIC OBSTRUCTIVE PULMONARY DISEASE
     Dosage: 180 UG, 2 PUFFS TWICE A DAY
     Route: 055
     Dates: start: 201612

REACTIONS (3)
  - Product use issue [Unknown]
  - Off label use [Unknown]
  - Dyspnoea [Unknown]

NARRATIVE: CASE EVENT DATE: 201612
